FAERS Safety Report 4506507-0 (Version None)
Quarter: 2004Q4

REPORT INFORMATION
  Report Type: 
  Country: None (occurrence: None)
  Receive Date: 20041122
  Receipt Date: 20041026
  Transmission Date: 20050328
  Serious: Yes (Other)
  Sender: FDA-Public Use
  Company Number: JP-ABBOTT-04P-087-0278871-00

PATIENT
  Age: 77 Year
  Sex: Female

DRUGS (6)
  1. SEVOFLURANE [Suspect]
     Indication: ANAESTHESIA
     Route: 055
  2. PROPOFOL [Concomitant]
     Indication: ANAESTHESIA
     Route: 065
  3. FENTANYL [Concomitant]
     Indication: ANAESTHESIA
     Route: 065
  4. VECURONIUM BROMIDE [Concomitant]
     Indication: ANAESTHESIA
     Route: 065
  5. NITROUS OXIDE W/ OXYGEN [Concomitant]
     Indication: ANAESTHESIA
     Route: 065
  6. OXYGEN [Concomitant]
     Indication: ANAESTHESIA
     Route: 065

REACTIONS (2)
  - BRADYCARDIA [None]
  - SINUS ARREST [None]
